FAERS Safety Report 11134306 (Version 1)
Quarter: 2015Q2

REPORT INFORMATION
  Report Type: Report from Study
  Country: CA (occurrence: CA)
  Receive Date: 20150525
  Receipt Date: 20150525
  Transmission Date: 20150821
  Serious: Yes (Death)
  Sender: FDA-Public Use
  Company Number: CA-AMGEN-CANSL2015049625

PATIENT
  Age: 86 Year
  Sex: Female

DRUGS (1)
  1. PROLIA [Suspect]
     Active Substance: DENOSUMAB
     Indication: OSTEOPOROSIS POSTMENOPAUSAL
     Dosage: 60 MG, Q6MO
     Route: 058
     Dates: start: 20121219

REACTIONS (1)
  - Death [Fatal]

NARRATIVE: CASE EVENT DATE: 20150421
